FAERS Safety Report 19567199 (Version 27)
Quarter: 2023Q2

REPORT INFORMATION
  Report Type: Report from Study
  Country: CN (occurrence: None)
  Receive Date: 20210715
  Receipt Date: 20230531
  Transmission Date: 20230722
  Serious: Yes (Life-Threatening, Hospitalization)
  Sender: FDA-Public Use
  Company Number: CN-ROCHE-2868540

PATIENT
  Age: 50 Year
  Sex: Male
  Weight: 61.8 kg

DRUGS (123)
  1. GLOFITAMAB [Suspect]
     Active Substance: GLOFITAMAB
     Indication: Diffuse large B-cell lymphoma recurrent
     Dosage: START DATE OF MOST RECENT DOSE OF STUDY DRUG PRIOR TO AE11/JUN/2021 AND START DATE OF MOST RECENT DO
     Route: 042
     Dates: start: 20210611
  2. OBINUTUZUMAB [Suspect]
     Active Substance: OBINUTUZUMAB
     Indication: Diffuse large B-cell lymphoma recurrent
     Dosage: START DATE OF MOST RECENT DOSE OF STUDY DRUG PRIOR TO SAE 04/JUN/2021?DOSE LAST STUDY DRUG ADMIN PRI
     Route: 042
     Dates: start: 20210604
  3. TOCILIZUMAB [Suspect]
     Active Substance: TOCILIZUMAB
     Indication: Diffuse large B-cell lymphoma recurrent
     Dosage: START DATE OF MOST RECENT DOSE OF STUDY DRUG PRIOR TO SAE 09/JUL/2021?DOSE LAST STUDY DRUG ADMIN PRI
     Route: 042
     Dates: start: 20210709
  4. METHYLPREDNISOLONE [Concomitant]
     Active Substance: METHYLPREDNISOLONE
     Indication: Premedication
     Route: 042
     Dates: start: 20210611, end: 20210611
  5. METHYLPREDNISOLONE [Concomitant]
     Active Substance: METHYLPREDNISOLONE
     Route: 042
     Dates: start: 20210708, end: 20210708
  6. METHYLPREDNISOLONE [Concomitant]
     Active Substance: METHYLPREDNISOLONE
     Route: 042
     Dates: start: 20210604, end: 20210604
  7. METHYLPREDNISOLONE [Concomitant]
     Active Substance: METHYLPREDNISOLONE
     Route: 042
     Dates: start: 20210615, end: 20210615
  8. METHYLPREDNISOLONE [Concomitant]
     Active Substance: METHYLPREDNISOLONE
     Route: 048
     Dates: start: 20210812, end: 20210812
  9. DIPHENHYDRAMINE [Concomitant]
     Active Substance: DIPHENHYDRAMINE
     Indication: Hypersensitivity
     Route: 030
     Dates: start: 20210611, end: 20210611
  10. DIPHENHYDRAMINE [Concomitant]
     Active Substance: DIPHENHYDRAMINE
     Indication: Infusion related reaction
     Route: 042
     Dates: start: 20210612, end: 20210612
  11. DIPHENHYDRAMINE [Concomitant]
     Active Substance: DIPHENHYDRAMINE
     Indication: Premedication
     Route: 030
     Dates: start: 20210708, end: 20210708
  12. DIPHENHYDRAMINE [Concomitant]
     Active Substance: DIPHENHYDRAMINE
     Route: 030
     Dates: start: 20210729, end: 20210730
  13. DIPHENHYDRAMINE [Concomitant]
     Active Substance: DIPHENHYDRAMINE
     Route: 030
     Dates: start: 20210604, end: 20210604
  14. EPRAZOLE [OMEPRAZOLE] [Concomitant]
     Route: 042
     Dates: start: 20210611, end: 20210611
  15. EPRAZOLE [OMEPRAZOLE] [Concomitant]
     Route: 048
     Dates: start: 20210709, end: 20210709
  16. POTASSIUM CHLORIDE [Concomitant]
     Active Substance: POTASSIUM CHLORIDE
     Indication: Mineral supplementation
     Route: 042
     Dates: start: 20210612, end: 20210615
  17. POTASSIUM CHLORIDE [Concomitant]
     Active Substance: POTASSIUM CHLORIDE
     Route: 042
     Dates: start: 20210709, end: 20210806
  18. POTASSIUM [Concomitant]
     Active Substance: POTASSIUM
     Route: 042
     Dates: start: 20210612, end: 20210615
  19. DEXAMETHASONE [Concomitant]
     Active Substance: DEXAMETHASONE
     Indication: Hypersensitivity
     Route: 042
     Dates: start: 20210612, end: 20210615
  20. DEXAMETHASONE [Concomitant]
     Active Substance: DEXAMETHASONE
     Indication: Infusion related reaction
     Route: 042
     Dates: start: 20210709, end: 20210712
  21. DEXAMETHASONE [Concomitant]
     Active Substance: DEXAMETHASONE
     Route: 042
     Dates: start: 20210713, end: 20210715
  22. DEXAMETHASONE [Concomitant]
     Active Substance: DEXAMETHASONE
     Route: 042
     Dates: start: 20210728, end: 20210729
  23. DEXAMETHASONE [Concomitant]
     Active Substance: DEXAMETHASONE
     Route: 042
     Dates: start: 20210804, end: 20210806
  24. DEXAMETHASONE [Concomitant]
     Active Substance: DEXAMETHASONE
     Route: 042
     Dates: start: 20210723, end: 20210803
  25. RABEPRAZOLE SODIUM [Concomitant]
     Active Substance: RABEPRAZOLE SODIUM
     Route: 042
     Dates: start: 20210612, end: 20210612
  26. PALONOSETRON [Concomitant]
     Active Substance: PALONOSETRON
     Indication: Vomiting
     Route: 042
     Dates: start: 20210612, end: 20210612
  27. PALONOSETRON [Concomitant]
     Active Substance: PALONOSETRON
     Indication: Nausea
     Route: 042
     Dates: start: 20210729, end: 20210730
  28. CELECOXIB [Concomitant]
     Active Substance: CELECOXIB
     Indication: Infusion related reaction
     Route: 048
     Dates: start: 20210611, end: 20210611
  29. POLYENE PHOSPHOLIPID CAPSULES (UNK INGREDIENTS) [Concomitant]
     Route: 048
     Dates: start: 20210617, end: 20210707
  30. BICYCLOL [Concomitant]
     Active Substance: BICYCLOL
     Route: 048
     Dates: start: 20210617, end: 20210707
  31. MAGNESIUM SULFATE [Concomitant]
     Active Substance: MAGNESIUM SULFATE
     Indication: Seizure
     Route: 042
     Dates: start: 20210612, end: 20210615
  32. MAGNESIUM SULFATE [Concomitant]
     Active Substance: MAGNESIUM SULFATE
     Route: 042
     Dates: start: 20210722, end: 20210722
  33. CALCIUM [Concomitant]
     Active Substance: CALCIUM
     Route: 042
     Dates: start: 20210612, end: 20210615
  34. CEFOPERAZONE\SULBACTAM [Concomitant]
     Active Substance: CEFOPERAZONE\SULBACTAM
     Indication: Infection
     Route: 042
     Dates: start: 20210709, end: 20210709
  35. CEFOPERAZONE\SULBACTAM [Concomitant]
     Active Substance: CEFOPERAZONE\SULBACTAM
     Route: 042
     Dates: start: 20210709
  36. CEFOPERAZONE\SULBACTAM [Concomitant]
     Active Substance: CEFOPERAZONE\SULBACTAM
     Route: 042
     Dates: start: 20210717, end: 20210717
  37. CEFOPERAZONE\SULBACTAM [Concomitant]
     Active Substance: CEFOPERAZONE\SULBACTAM
     Route: 042
     Dates: start: 20210803, end: 20210806
  38. CEFOPERAZONE\SULBACTAM [Concomitant]
     Active Substance: CEFOPERAZONE\SULBACTAM
     Route: 048
     Dates: start: 20210709, end: 20210709
  39. SODIUM BICARBONATE [Concomitant]
     Active Substance: SODIUM BICARBONATE
     Route: 042
     Dates: start: 20210707, end: 20210708
  40. SODIUM BICARBONATE [Concomitant]
     Active Substance: SODIUM BICARBONATE
     Route: 042
     Dates: start: 20210603, end: 20210603
  41. EPRAZOLE [OMEPRAZOLE] [Concomitant]
     Route: 042
     Dates: start: 20210708, end: 20210708
  42. EPRAZOLE [OMEPRAZOLE] [Concomitant]
     Route: 048
     Dates: start: 20210709, end: 20210709
  43. AMINOPHENAZONE [Concomitant]
     Active Substance: AMINOPHENAZONE
     Route: 030
     Dates: start: 20210709, end: 20210709
  44. TRAMADOL [Concomitant]
     Active Substance: TRAMADOL
     Indication: Abdominal pain
     Route: 030
     Dates: start: 20210709, end: 20210709
  45. TRAMADOL [Concomitant]
     Active Substance: TRAMADOL
     Route: 030
     Dates: start: 20210722, end: 20210722
  46. MORPHINE [Concomitant]
     Active Substance: MORPHINE
     Indication: Abdominal pain
     Route: 058
     Dates: start: 20210709, end: 20210709
  47. ANISODAMINE [Concomitant]
     Active Substance: ANISODAMINE
     Indication: Muscle spasms
     Route: 030
     Dates: start: 20210709, end: 20210709
  48. ANISODAMINE [Concomitant]
     Active Substance: ANISODAMINE
     Route: 030
     Dates: start: 20210722, end: 20210722
  49. PARECOXIB SODIUM [Concomitant]
     Active Substance: PARECOXIB SODIUM
     Indication: Abdominal pain
     Route: 042
     Dates: start: 20210709, end: 20210711
  50. PARECOXIB SODIUM [Concomitant]
     Active Substance: PARECOXIB SODIUM
     Route: 042
     Dates: start: 20210710, end: 20210711
  51. PARECOXIB SODIUM [Concomitant]
     Active Substance: PARECOXIB SODIUM
     Route: 042
     Dates: start: 20210717, end: 20210806
  52. PREDNISONE [Concomitant]
     Active Substance: PREDNISONE
     Indication: Prophylaxis
     Route: 048
     Dates: start: 20210709, end: 20210709
  53. PREDNISONE [Concomitant]
     Active Substance: PREDNISONE
     Indication: Infusion related reaction
  54. SODIUM CHLORIDE [Concomitant]
     Active Substance: SODIUM CHLORIDE
     Route: 042
     Dates: start: 20210709, end: 20210709
  55. SODIUM CHLORIDE [Concomitant]
     Active Substance: SODIUM CHLORIDE
     Route: 042
     Dates: start: 20210709, end: 20210806
  56. CALCIUM GLUCONATE [Concomitant]
     Active Substance: CALCIUM GLUCONATE
     Indication: Nutritional supplementation
     Route: 042
     Dates: start: 20210709, end: 20210806
  57. INSULIN NOS [Concomitant]
     Active Substance: INSULIN NOS
     Route: 042
     Dates: start: 20210709, end: 20210806
  58. INSULIN NOS [Concomitant]
     Active Substance: INSULIN NOS
     Route: 055
     Dates: start: 20210718, end: 20210806
  59. INSULIN NOS [Concomitant]
     Active Substance: INSULIN NOS
     Route: 058
     Dates: start: 20210718, end: 20210806
  60. ALBUMIN HUMAN [Concomitant]
     Active Substance: ALBUMIN HUMAN
     Indication: Hypoalbuminaemia
     Route: 042
     Dates: start: 20210709, end: 20210806
  61. DOPAMINE [Concomitant]
     Active Substance: DOPAMINE HYDROCHLORIDE
     Indication: Hypotension
     Route: 042
     Dates: start: 20210717, end: 20210717
  62. ALUMINUM MAGNESIUM CARBONATE TABLETS [Concomitant]
     Route: 048
     Dates: start: 20210721, end: 20210806
  63. IMIPENEM [Concomitant]
     Active Substance: IMIPENEM
     Indication: Infection
     Route: 042
     Dates: start: 20210709, end: 20210803
  64. CILASTATIN SODIUM [Concomitant]
     Active Substance: CILASTATIN SODIUM
     Route: 042
     Dates: start: 20210709
  65. ILAPRAZOLE [Concomitant]
     Active Substance: ILAPRAZOLE
     Route: 048
     Dates: start: 20210709, end: 20210709
  66. ILAPRAZOLE [Concomitant]
     Active Substance: ILAPRAZOLE
     Route: 042
     Dates: start: 20210604, end: 20210604
  67. CEFUROXIME SAMMY (UNK INGREDIENTS) [Concomitant]
     Indication: Polyuria
     Route: 042
     Dates: start: 20210711
  68. LIDOCAINE [Concomitant]
     Active Substance: LIDOCAINE
     Indication: Anaesthesia
     Route: 042
     Dates: start: 20210723, end: 20210723
  69. BENDAMUSTINE [Concomitant]
     Active Substance: BENDAMUSTINE
     Dates: start: 20210729, end: 20210730
  70. NIFEDIPINE [Concomitant]
     Active Substance: NIFEDIPINE
     Indication: Hypertension
     Route: 048
     Dates: start: 20210712, end: 20210712
  71. CODEINE PHOSPHATE;PLATYCODON GRANDIFLORUS [Concomitant]
     Indication: Cough
     Route: 048
     Dates: start: 20210729, end: 20210731
  72. BENDAMUSTINE HYDROCHLORIDE [Concomitant]
     Active Substance: BENDAMUSTINE HYDROCHLORIDE
     Indication: Lymphoma
     Route: 042
     Dates: start: 20210729, end: 20210730
  73. RECOMBINANT HUMAN GRANULOCYTE COLONY STIMULATING FACTOR (UNK INGREDIEN [Concomitant]
     Indication: White blood cell count decreased
     Dosage: 150 UG
     Route: 058
     Dates: start: 20210731, end: 20210731
  74. RECOMBINANT HUMAN GRANULOCYTE COLONY STIMULATING FACTOR (UNK INGREDIEN [Concomitant]
     Indication: Neutrophil count decreased
     Dosage: 150 UG
     Route: 058
     Dates: start: 20210803, end: 20210806
  75. GLYCERIN [Concomitant]
     Active Substance: GLYCERIN
     Route: 061
     Dates: start: 20210803, end: 20210803
  76. GLYCERIN [Concomitant]
     Active Substance: GLYCERIN
     Route: 061
     Dates: start: 20210711, end: 20210806
  77. GLYCERIN [Concomitant]
     Active Substance: GLYCERIN
     Route: 061
     Dates: start: 20210727, end: 20210727
  78. LEVOTHYROXINE SODIUM [Concomitant]
     Active Substance: LEVOTHYROXINE SODIUM
     Indication: Hypothyroidism
     Dosage: 50 UG
     Route: 048
     Dates: start: 20210721, end: 20210806
  79. ILAPRAZOLE [Concomitant]
     Active Substance: ILAPRAZOLE
     Route: 042
     Dates: start: 20210709, end: 20210709
  80. ILAPRAZOLE [Concomitant]
     Active Substance: ILAPRAZOLE
     Route: 042
     Dates: start: 20210611, end: 20210611
  81. ILAPRAZOLE [Concomitant]
     Active Substance: ILAPRAZOLE
     Route: 042
     Dates: start: 20210708, end: 20210708
  82. PARECOXIB SODIUM [Concomitant]
     Active Substance: PARECOXIB SODIUM
     Indication: Abdominal pain
     Route: 042
     Dates: start: 20210707
  83. AMBROXOL HYDROCHLORIDE [Concomitant]
     Active Substance: AMBROXOL HYDROCHLORIDE
     Indication: Cough
     Route: 048
     Dates: start: 20210725, end: 20210725
  84. LANSOPRAZOLE [Concomitant]
     Active Substance: LANSOPRAZOLE
     Route: 042
     Dates: start: 20210729, end: 20210730
  85. OXYGEN [Concomitant]
     Active Substance: OXYGEN
     Indication: Hypoxia
     Route: 055
     Dates: start: 20210709, end: 20210803
  86. FUROSEMIDE [Concomitant]
     Active Substance: FUROSEMIDE
     Indication: Polyuria
     Route: 042
     Dates: start: 20210711, end: 20210806
  87. CEFOPERAZONE\SULBACTAM [Concomitant]
     Active Substance: CEFOPERAZONE\SULBACTAM
     Indication: Infection
     Route: 042
     Dates: start: 20210717, end: 20210717
  88. CEFOPERAZONE\SULBACTAM [Concomitant]
     Active Substance: CEFOPERAZONE\SULBACTAM
     Route: 042
     Dates: start: 20210709, end: 20210709
  89. DEXTROSE\SODIUM CHLORIDE [Concomitant]
     Active Substance: DEXTROSE\SODIUM CHLORIDE
     Indication: Nutritional supplementation
     Route: 042
     Dates: start: 20210707, end: 20210707
  90. DEXTROSE\SODIUM CHLORIDE [Concomitant]
     Active Substance: DEXTROSE\SODIUM CHLORIDE
     Route: 042
     Dates: start: 20210709, end: 20210721
  91. DEXTROSE\SODIUM CHLORIDE [Concomitant]
     Active Substance: DEXTROSE\SODIUM CHLORIDE
     Route: 042
     Dates: start: 20210603, end: 20210603
  92. ZYVOX [Concomitant]
     Active Substance: LINEZOLID
     Indication: Infection
     Route: 042
     Dates: start: 20210709, end: 20210721
  93. TRAMADOL [Concomitant]
     Active Substance: TRAMADOL
     Indication: Abdominal pain
     Route: 030
     Dates: start: 20210722, end: 20210722
  94. ALLOPURINOL [Concomitant]
     Active Substance: ALLOPURINOL
     Route: 048
     Dates: start: 20210603, end: 20210603
  95. ALLOPURINOL [Concomitant]
     Active Substance: ALLOPURINOL
     Route: 048
     Dates: start: 20210608, end: 20210608
  96. DEXTROSE [Concomitant]
     Active Substance: DEXTROSE\DEXTROSE MONOHYDRATE
     Route: 042
     Dates: start: 20210612, end: 20210615
  97. DEXTROSE [Concomitant]
     Active Substance: DEXTROSE\DEXTROSE MONOHYDRATE
     Route: 042
     Dates: start: 20210709, end: 20210806
  98. ACETAMINOPHEN\CAFFEINE [Concomitant]
     Active Substance: ACETAMINOPHEN\CAFFEINE
     Route: 048
     Dates: start: 20210604, end: 20210604
  99. CEFOPERAZONE SODIUM\SULBACTAM SODIUM [Concomitant]
     Active Substance: CEFOPERAZONE SODIUM\SULBACTAM SODIUM
     Route: 042
     Dates: start: 20210806, end: 20210813
  100. CASPOFUNGIN ACETATE [Concomitant]
     Active Substance: CASPOFUNGIN ACETATE
     Route: 042
     Dates: start: 20210815, end: 20210820
  101. CASPOFUNGIN ACETATE [Concomitant]
     Active Substance: CASPOFUNGIN ACETATE
     Route: 042
     Dates: start: 20210814, end: 20210820
  102. RECOMBINANT HUMAN BRAIN NATRIURETIC PEPTIDE [Concomitant]
     Route: 042
     Dates: start: 20210826, end: 20210826
  103. MOXIFLOXACIN HYDROCHLORIDE [Concomitant]
     Active Substance: MOXIFLOXACIN HYDROCHLORIDE
     Route: 048
     Dates: start: 20210823, end: 20210826
  104. MOXIFLOXACIN HYDROCHLORIDE [Concomitant]
     Active Substance: MOXIFLOXACIN HYDROCHLORIDE
     Route: 048
     Dates: start: 20210813, end: 20210814
  105. MORPHINE SULFATE [Concomitant]
     Active Substance: MORPHINE SULFATE
     Route: 048
     Dates: start: 20210826, end: 20210826
  106. TRIMETAZIDINE [Concomitant]
     Active Substance: TRIMETAZIDINE
     Route: 048
     Dates: start: 20210826, end: 20210826
  107. DESLANOSIDE [Concomitant]
     Active Substance: DESLANOSIDE
     Route: 042
     Dates: start: 20210826, end: 20210826
  108. PIPERACILLIN SODIUM\TAZOBACTAM SODIUM [Concomitant]
     Active Substance: PIPERACILLIN SODIUM\TAZOBACTAM SODIUM
     Route: 042
     Dates: start: 20210826, end: 20210826
  109. TOCILIZUMAB [Concomitant]
     Active Substance: TOCILIZUMAB
     Route: 042
     Dates: start: 20210826, end: 20210826
  110. TOCILIZUMAB [Concomitant]
     Active Substance: TOCILIZUMAB
     Route: 042
     Dates: start: 20210823, end: 20210823
  111. ISOSORBIDE DINITRATE [Concomitant]
     Active Substance: ISOSORBIDE DINITRATE
     Route: 042
     Dates: start: 20210826, end: 20210826
  112. IMIPENEM AND CILASTATIN SODIUM [Concomitant]
     Active Substance: CILASTATIN SODIUM\IMIPENEM
     Route: 042
     Dates: start: 20210814, end: 20210820
  113. IMIPENEM AND CILASTATIN SODIUM [Concomitant]
     Active Substance: CILASTATIN SODIUM\IMIPENEM
     Route: 042
     Dates: start: 20210827, end: 20210827
  114. MORPHINE HYDROCHLORIDE [Concomitant]
     Active Substance: MORPHINE HYDROCHLORIDE
     Route: 042
     Dates: start: 20210826, end: 20210826
  115. MORPHINE HYDROCHLORIDE [Concomitant]
     Active Substance: MORPHINE HYDROCHLORIDE
     Route: 042
     Dates: start: 20210826, end: 20210826
  116. LEVOCARNITINE [Concomitant]
     Active Substance: LEVOCARNITINE
     Route: 042
     Dates: start: 20210826, end: 20210826
  117. UBIDECARENONE [Concomitant]
     Active Substance: UBIDECARENONE
     Route: 042
     Dates: start: 20210826, end: 20210826
  118. TORSEMIDE [Concomitant]
     Active Substance: TORSEMIDE
     Route: 042
     Dates: start: 20210826, end: 20210826
  119. OCTREOTIDE ACETATE [Concomitant]
     Active Substance: OCTREOTIDE ACETATE
     Route: 042
     Dates: start: 20210826, end: 20210826
  120. NITROGLYCERIN [Concomitant]
     Active Substance: NITROGLYCERIN
     Route: 042
     Dates: start: 20210826, end: 20210826
  121. LOBELINE HYDROCHLORIDE [Concomitant]
     Active Substance: LOBELINE HYDROCHLORIDE
     Route: 042
     Dates: start: 20210826, end: 20210826
  122. NIKETHAMIDE [Concomitant]
     Active Substance: NIKETHAMIDE
     Route: 042
     Dates: start: 20210826, end: 20210826
  123. SUFENTANIL CITRATE [Concomitant]
     Active Substance: SUFENTANIL CITRATE
     Route: 042
     Dates: start: 20210826, end: 20210826

REACTIONS (7)
  - Peritonitis [Recovering/Resolving]
  - Pancreatitis [Recovering/Resolving]
  - Anaemia [Recovering/Resolving]
  - Cytokine release syndrome [Recovered/Resolved]
  - Aspartate aminotransferase increased [Recovered/Resolved]
  - Alanine aminotransferase increased [Recovered/Resolved]
  - Blood bilirubin increased [Recovered/Resolved]

NARRATIVE: CASE EVENT DATE: 20210617
